FAERS Safety Report 9440674 (Version 2)
Quarter: 2013Q3

REPORT INFORMATION
  Report Type: Report from Study
  Country: JP (occurrence: JP)
  Receive Date: 20130805
  Receipt Date: 20130919
  Transmission Date: 20140515
  Serious: Yes (Hospitalization, Other)
  Sender: FDA-Public Use
  Company Number: JP-SHIRE-SPV1-2010-01156

PATIENT
  Age: 73 Year
  Sex: Male

DRUGS (33)
  1. 405 (LANTHANUM CARBONATE) [Suspect]
     Indication: HYPERPHOSPHATAEMIA
     Dosage: 750 MG, 1X/DAY:QD
     Route: 048
     Dates: start: 20090529, end: 20091030
  2. 405 (LANTHANUM CARBONATE) [Suspect]
     Dosage: 1000 MG, 1X/DAY:QD
     Route: 048
     Dates: start: 20091030, end: 20091120
  3. 405 (LANTHANUM CARBONATE) [Suspect]
     Dosage: 1250 MG, 1X/DAY:QD
     Route: 048
     Dates: start: 20091120, end: 20091202
  4. 405 (LANTHANUM CARBONATE) [Suspect]
     Dosage: 1500 MG, 1X/DAY:QD
     Route: 048
     Dates: start: 20091203, end: 20091218
  5. 405 (LANTHANUM CARBONATE) [Suspect]
     Dosage: 1750 MG, 1X/DAY:QD
     Route: 048
     Dates: start: 20091219, end: 20100212
  6. 405 (LANTHANUM CARBONATE) [Suspect]
     Dosage: 2000 MG, 1X/DAY:QD
     Route: 048
     Dates: start: 20100213, end: 20100226
  7. 405 (LANTHANUM CARBONATE) [Suspect]
     Dosage: 2250 MG, 1X/DAY:QD
     Route: 048
     Dates: start: 20100227, end: 20100528
  8. 405 (LANTHANUM CARBONATE) [Suspect]
     Dosage: 1500 MG, 1X/DAY:QD
     Route: 048
     Dates: start: 20100529, end: 20101229
  9. 405 (LANTHANUM CARBONATE) [Suspect]
     Dosage: 1750 MG, UNKNOWN
     Route: 048
     Dates: start: 20101230, end: 20121027
  10. 405 (LANTHANUM CARBONATE) [Suspect]
     Dosage: 1000 MG, 1X/DAY:QD
     Route: 048
     Dates: start: 20121028, end: 20130112
  11. 405 (LANTHANUM CARBONATE) [Suspect]
     Dosage: 1250 MG, 1X/DAY:QD
     Route: 048
     Dates: start: 20130113
  12. CONIEL [Suspect]
     Indication: PRODUCT USED FOR UNKNOWN INDICATION
     Dosage: 8 MG, 1X/DAY:QD
     Route: 048
  13. CONIEL [Suspect]
     Dosage: 4 MG, 1X/DAY:QD
     Route: 048
     Dates: start: 20091106
  14. DIOVAN [Suspect]
     Indication: PRODUCT USED FOR UNKNOWN INDICATION
     Dosage: UNK UNK, UNKNOWN
     Route: 048
  15. DIOVAN [Suspect]
     Dosage: 160 MG, 1X/DAY:QD
     Route: 048
     Dates: start: 20091016
  16. ALFAROL [Concomitant]
     Indication: PRODUCT USED FOR UNKNOWN INDICATION
     Dosage: 1 ?G, 1X/WEEK
     Route: 048
     Dates: start: 20041224, end: 20100610
  17. ALFAROL [Concomitant]
     Dosage: 0.25 ?G, UNKNOWN
     Route: 048
     Dates: start: 20100612, end: 20101217
  18. CARDENALIN [Concomitant]
     Indication: PRODUCT USED FOR UNKNOWN INDICATION
     Dosage: 2 MG, UNKNOWN
     Route: 048
  19. ZYLORIC [Concomitant]
     Indication: PRODUCT USED FOR UNKNOWN INDICATION
     Dosage: 100 MG, UNKNOWN
     Route: 048
  20. BAYASPIRIN [Concomitant]
     Indication: PRODUCT USED FOR UNKNOWN INDICATION
     Dosage: 100 MG, UNKNOWN
     Route: 048
  21. HERBESSER R [Concomitant]
     Indication: PRODUCT USED FOR UNKNOWN INDICATION
     Dosage: 100 MG, UNKNOWN
     Route: 048
  22. MEXITIL [Concomitant]
     Indication: PRODUCT USED FOR UNKNOWN INDICATION
     Dosage: 150 MG, UNKNOWN
     Route: 048
  23. DOPS [Concomitant]
     Indication: PROCEDURAL HYPOTENSION
     Dosage: 200 MG, UNKNOWN
     Route: 048
  24. FORSENID                           /00571901/ [Concomitant]
     Indication: PRODUCT USED FOR UNKNOWN INDICATION
     Dosage: 36 MG, UNKNOWN
     Route: 048
  25. CALTAN [Concomitant]
     Indication: HYPERPHOSPHATAEMIA
     Dosage: 3000 MG, UNKNOWN
     Route: 048
     Dates: start: 20050812, end: 20091016
  26. CALTAN [Concomitant]
     Dosage: 1500 MG, UNKNOWN
     Route: 048
     Dates: start: 20091017, end: 20091030
  27. RENAGEL [Concomitant]
     Indication: HYPERPHOSPHATAEMIA
     Dosage: UNK UNK, UNKNOWN
     Route: 048
  28. OXAROL [Concomitant]
     Indication: PRODUCT USED FOR UNKNOWN INDICATION
     Dosage: 15 ?G, 1X/WEEK
     Route: 042
     Dates: start: 20101220, end: 20110107
  29. OXAROL [Concomitant]
     Dosage: 1.0 ?G, 1X/WEEK
     Route: 042
     Dates: start: 20110110, end: 20110207
  30. OXAROL [Concomitant]
     Dosage: 7.5 ?G, 1X/WEEK
     Route: 041
     Dates: start: 20110211, end: 20120406
  31. OXAROL [Concomitant]
     Dosage: 5 ?G, 1X/WEEK
     Route: 041
     Dates: start: 20120409, end: 20130504
  32. OXAROL [Concomitant]
     Dosage: 7.5 ?G, 1X/WEEK
     Dates: start: 20130507
  33. REGPARA [Concomitant]
     Indication: HYPERPARATHYROIDISM SECONDARY
     Dosage: 25 MG, UNKNOWN
     Route: 048
     Dates: start: 20110813

REACTIONS (3)
  - Transient ischaemic attack [Recovered/Resolved]
  - Colon cancer [Unknown]
  - Peripheral artery stenosis [Recovering/Resolving]
